FAERS Safety Report 25500695 (Version 2)
Quarter: 2025Q3

REPORT INFORMATION
  Report Type: Spontaneous
  Country: TH (occurrence: TH)
  Receive Date: 20250701
  Receipt Date: 20250707
  Transmission Date: 20251020
  Serious: Yes (Hospitalization, Other)
  Sender: SANOFI AVENTIS
  Company Number: TH-SA-2025SA185901

PATIENT
  Age: 64 Year
  Sex: Female

DRUGS (6)
  1. LEVOFLOXACIN [Suspect]
     Active Substance: LEVOFLOXACIN
     Indication: Bone tuberculosis
     Dosage: 750 MG, QD
  2. ETHAMBUTOL [Suspect]
     Active Substance: ETHAMBUTOL HYDROCHLORIDE
     Indication: Bone tuberculosis
     Dosage: 800 MG, QD
  3. PYRAZINAMIDE [Suspect]
     Active Substance: PYRAZINAMIDE
     Indication: Bone tuberculosis
     Dosage: 1500 MG, QD
  4. RIFAMPIN [Suspect]
     Active Substance: RIFAMPIN
     Indication: Bone tuberculosis
     Dosage: 600 MG, QD
  5. ISONIAZID [Suspect]
     Active Substance: ISONIAZID
     Indication: Bone tuberculosis
     Dosage: 300 MG, QD
  6. AMIKACIN [Suspect]
     Active Substance: AMIKACIN
     Indication: Bone tuberculosis
     Dosage: 1 G, QD
     Route: 042

REACTIONS (12)
  - Acute kidney injury [Recovering/Resolving]
  - Nausea [Recovering/Resolving]
  - Muscular weakness [Recovering/Resolving]
  - Somnolence [Recovering/Resolving]
  - Vomiting [Recovering/Resolving]
  - Renal tubular dysfunction [Recovering/Resolving]
  - Dry mouth [Recovering/Resolving]
  - Hepatitis cholestatic [Recovering/Resolving]
  - Hypertransaminasaemia [Recovering/Resolving]
  - Jaundice [Recovering/Resolving]
  - Tubulointerstitial nephritis [Recovering/Resolving]
  - Crystal nephropathy [Recovering/Resolving]
